FAERS Safety Report 16836320 (Version 6)
Quarter: 2019Q4

REPORT INFORMATION
  Report Type: Spontaneous
  Country: US (occurrence: US)
  Receive Date: 20190921
  Receipt Date: 20191030
  Transmission Date: 20200122
  Serious: Yes (Hospitalization, Other)
  Sender: FDA-Public Use
  Company Number: US-009507513-1909USA004686

PATIENT
  Age: 67 Year
  Sex: Male
  Weight: 115.65 kg

DRUGS (5)
  1. AMITRIPTYLINE HYDROCHLORIDE. [Suspect]
     Active Substance: AMITRIPTYLINE HYDROCHLORIDE
     Indication: INSOMNIA
     Dosage: 25 MG, QHS
     Route: 048
     Dates: start: 2017
  2. PRINIVIL [Suspect]
     Active Substance: LISINOPRIL
     Indication: HYPERTENSION
     Dosage: 5 MG, 1X/DAY
     Route: 048
     Dates: start: 2016
  3. GABAPENTIN. [Suspect]
     Active Substance: GABAPENTIN
     Indication: NEUROPATHY PERIPHERAL
     Dosage: 800 MG, 3X/DAY
     Route: 048
     Dates: start: 2017
  4. BACLOFEN. [Suspect]
     Active Substance: BACLOFEN
     Indication: MUSCLE SPASMS
     Dosage: 20 MG, 3X/DAY
     Route: 048
     Dates: start: 2017
  5. METOPROLOL SUCCINATE. [Suspect]
     Active Substance: METOPROLOL SUCCINATE
     Indication: HYPERTENSION
     Dosage: 50 MG, 1XDAY, EXTENDED RELEASE (ER)
     Route: 048
     Dates: start: 2016

REACTIONS (18)
  - Muscle spasms [Not Recovered/Not Resolved]
  - Hypoxia [Unknown]
  - Paralysis [Unknown]
  - Bradycardia [Unknown]
  - Dysarthria [Unknown]
  - Asthenia [Unknown]
  - Urinary incontinence [Unknown]
  - Nausea [Unknown]
  - Blood pressure decreased [Unknown]
  - Product dose omission [Unknown]
  - Syncope [Recovered/Resolved]
  - Restless legs syndrome [Not Recovered/Not Resolved]
  - Hypersomnia [Unknown]
  - Insomnia [Not Recovered/Not Resolved]
  - Dizziness [Unknown]
  - Muscular weakness [Unknown]
  - Spinal osteoarthritis [Unknown]
  - Neck pain [Unknown]

NARRATIVE: CASE EVENT DATE: 2017
